FAERS Safety Report 7598338-2 (Version None)
Quarter: 2011Q3

REPORT INFORMATION
  Report Type: 
  Country: None (occurrence: None)
  Receive Date: 20110708
  Receipt Date: 20110628
  Transmission Date: 20111222
  Serious: Yes (Other)
  Sender: FDA-Public Use
  Company Number: PHHY2010JP56449

PATIENT
  Age: 76 Year
  Sex: Female
  Weight: 45 kg

DRUGS (16)
  1. SORAFENIB TOSILATE [Concomitant]
     Indication: METASTATIC RENAL CELL CARCINOMA
     Dosage: 800 MG, UNK
     Route: 048
     Dates: start: 20080718, end: 20100510
  2. DECADRON [Concomitant]
     Dosage: 1 MG, UNK
     Route: 048
     Dates: start: 20080801
  3. DECADRON [Concomitant]
     Dosage: 0.5 MG, UNK
     Route: 048
  4. METHYCOBAL [Concomitant]
     Dosage: 1000 UG, UNK
     Route: 048
  5. JUVELA NICOTINATE [Concomitant]
     Dosage: 400 MG, UNK
  6. FAMOTIDINE [Concomitant]
     Dosage: 40 MG, UNK
     Route: 048
  7. AFINITOR [Suspect]
     Indication: METASTATIC RENAL CELL CARCINOMA
     Dosage: 10 MG, DAILY
     Route: 048
     Dates: start: 20100608, end: 20100705
  8. POLARAMINE [Concomitant]
     Dosage: 2 MG, UNK
     Route: 048
     Dates: start: 20080801
  9. DEPAS [Concomitant]
     Dosage: 0.5 MG, UNK
     Route: 048
  10. ROCALTROL [Concomitant]
     Dosage: 0.5 UG, UNK
     Route: 048
  11. KENALOG [Concomitant]
     Dates: start: 20100612, end: 20100712
  12. SELBEX [Concomitant]
     Dosage: 100 MG, UNK
     Route: 048
     Dates: start: 20061101
  13. PRAVASTATIN SODIUM [Concomitant]
     Dosage: 10 MG, UNK
     Route: 048
  14. LOXONIN [Concomitant]
     Dosage: 60 MG, UNK
     Route: 048
     Dates: start: 20061101
  15. ADJUST-A [Concomitant]
     Dosage: 80 MG, UNK
     Route: 048
  16. INTERFERON ALFA [Concomitant]
     Indication: METASTATIC RENAL CELL CARCINOMA
     Dosage: 6000000 IU, UNK
     Route: 065
     Dates: start: 20061110, end: 20080717

REACTIONS (2)
  - NEOPLASM MALIGNANT [None]
  - SKIN ULCER [None]
